FAERS Safety Report 20131363 (Version 1)
Quarter: 2021Q4

REPORT INFORMATION
  Report Type: Spontaneous
  Country: US (occurrence: US)
  Receive Date: 20211130
  Receipt Date: 20211130
  Transmission Date: 20220303
  Serious: Yes (Hospitalization, Other)
  Sender: FDA-Public Use
  Company Number: US-GLAXOSMITHKLINE-US2021241452

PATIENT
  Age: 80 Year
  Sex: Female

DRUGS (10)
  1. TRELEGY ELLIPTA [Suspect]
     Active Substance: FLUTICASONE FUROATE\UMECLIDINIUM BROMIDE\VILANTEROL TRIFENATATE
     Indication: Chronic obstructive pulmonary disease
     Dosage: 100MCG/62.5MCG/25MCG, 1D
     Route: 055
     Dates: start: 2021
  2. ANORO ELLIPTA [Suspect]
     Active Substance: UMECLIDINIUM BROMIDE\VILANTEROL TRIFENATATE
     Indication: Chronic obstructive pulmonary disease
     Dosage: 62.5/25MCG,1 PUFF(S), 1D
     Route: 055
     Dates: start: 2021, end: 2021
  3. ALBUTEROL SULFATE [Suspect]
     Active Substance: ALBUTEROL SULFATE
     Indication: Chronic obstructive pulmonary disease
     Dosage: 8.5 G,200 METERED INHALATION,90MCG EACH DOSE
  4. LISINOPRIL [Concomitant]
     Active Substance: LISINOPRIL
     Indication: Hypertension
     Dosage: 5 MG, QD
  5. LISINOPRIL [Concomitant]
     Active Substance: LISINOPRIL
     Indication: Cardiac disorder
  6. CARBUTEROL [Concomitant]
     Indication: Cardiac disorder
     Dosage: 25 MG, QD
  7. FUROSEMIDE [Concomitant]
     Active Substance: FUROSEMIDE
     Indication: Weight increased
     Dosage: 20 MG, QD
  8. LEVOTHYROXINE SODIUM [Concomitant]
     Active Substance: LEVOTHYROXINE SODIUM
     Indication: Thyroid therapy
     Dosage: 50 UG, 1D
  9. XARELTO [Concomitant]
     Active Substance: RIVAROXABAN
     Indication: Peripheral arterial occlusive disease
     Dosage: 20 MG, QD
  10. ASPIRIN [Concomitant]
     Active Substance: ASPIRIN
     Indication: Cardiac disorder
     Dosage: 81 MG, QD
     Dates: start: 202106

REACTIONS (5)
  - Dyspnoea [Unknown]
  - Cardiac failure [Not Recovered/Not Resolved]
  - Chest discomfort [Unknown]
  - Breast cancer [Unknown]
  - Neoplasm malignant [Recovered/Resolved]

NARRATIVE: CASE EVENT DATE: 20191201
